FAERS Safety Report 23874664 (Version 1)
Quarter: 2024Q2

REPORT INFORMATION
  Report Type: Spontaneous
  Country: US (occurrence: US)
  Receive Date: 20240520
  Receipt Date: 20240520
  Transmission Date: 20240715
  Serious: No
  Sender: FDA-Public Use
  Company Number: US-IMP-2024000256

PATIENT
  Age: 52 Year
  Sex: Male

DRUGS (1)
  1. VEVYE [Suspect]
     Active Substance: CYCLOSPORINE
     Indication: Product used for unknown indication
     Dosage: ONE DROP IN EACH EYE TWO TIMES PER DAY
     Route: 047
     Dates: start: 20240425

REACTIONS (2)
  - Product use issue [Unknown]
  - Circumstance or information capable of leading to medication error [Unknown]
